FAERS Safety Report 23904556 (Version 1)
Quarter: 2024Q2

REPORT INFORMATION
  Report Type: Spontaneous
  Country: BR (occurrence: BR)
  Receive Date: 20240527
  Receipt Date: 20240527
  Transmission Date: 20240716
  Serious: Yes (Life-Threatening, Other)
  Sender: FDA-Public Use
  Company Number: BR-002147023-PHHY2019BR072010

PATIENT
  Age: 80 Year
  Sex: Female
  Weight: 49 kg

DRUGS (4)
  1. GLYCOPYRROLATE [Suspect]
     Active Substance: GLYCOPYRROLATE
     Indication: Emphysema
     Dosage: 1 DF, QD
     Route: 055
     Dates: start: 201708
  2. GLYCOPYRROLATE [Suspect]
     Active Substance: GLYCOPYRROLATE
     Indication: Chronic obstructive pulmonary disease
  3. UMECLIDINIUM BROMIDE\VILANTEROL TRIFENATATE [Suspect]
     Active Substance: UMECLIDINIUM BROMIDE\VILANTEROL TRIFENATATE
     Indication: Product used for unknown indication
     Dosage: UNK
     Route: 065
  4. ALENIA [Concomitant]
     Indication: Product used for unknown indication
     Dosage: UNK
     Route: 065

REACTIONS (8)
  - Feeling abnormal [Recovering/Resolving]
  - Haemorrhage [Recovering/Resolving]
  - Fall [Recovering/Resolving]
  - Joint injury [Recovering/Resolving]
  - Traumatic lung injury [Recovering/Resolving]
  - Rib fracture [Recovering/Resolving]
  - Weight decreased [Recovering/Resolving]
  - Drug ineffective [Recovering/Resolving]

NARRATIVE: CASE EVENT DATE: 20190324
